FAERS Safety Report 20954328 (Version 2)
Quarter: 2022Q2

REPORT INFORMATION
  Report Type: Spontaneous
  Country: NL (occurrence: NL)
  Receive Date: 20220614
  Receipt Date: 20220624
  Transmission Date: 20220721
  Serious: Yes (Life-Threatening, Hospitalization, Other)
  Sender: FDA-Public Use
  Company Number: NL-MLMSERVICE-20220527-3580976-1

PATIENT
  Age: 31 Year
  Sex: Female

DRUGS (5)
  1. VENLAFAXINE [Suspect]
     Active Substance: VENLAFAXINE HYDROCHLORIDE
     Indication: Antidepressant therapy
     Dosage: 120 DOSAGE FORM, 1 TOTAL
     Route: 048
  2. VENLAFAXINE [Suspect]
     Active Substance: VENLAFAXINE HYDROCHLORIDE
     Dosage: 1 DOSAGE FORM, ONCE A DAY
     Route: 065
  3. VENLAFAXINE [Suspect]
     Active Substance: VENLAFAXINE HYDROCHLORIDE
     Dosage: 150 MILLIGRAM, ONCE A DAY
     Route: 065
  4. VENLAFAXINE [Suspect]
     Active Substance: VENLAFAXINE HYDROCHLORIDE
     Dosage: 50 MILLIGRAM, ONCE A DAY
     Route: 048
  5. RIVAROXABAN [Concomitant]
     Active Substance: RIVAROXABAN
     Indication: Product used for unknown indication
     Dosage: 20 MILLIGRAM, ONCE A DAY
     Route: 065

REACTIONS (14)
  - Renal failure [Recovered/Resolved]
  - Hepatic failure [Recovered/Resolved]
  - Electrocardiogram QT prolonged [Recovered/Resolved]
  - Multiple organ dysfunction syndrome [Recovered/Resolved]
  - Lactic acidosis [Recovered/Resolved]
  - Metabolic acidosis [Recovered/Resolved]
  - Apnoea [Recovered/Resolved]
  - Intentional overdose [Recovered/Resolved]
  - Respiratory acidosis [Recovered/Resolved]
  - Shock [Recovered/Resolved]
  - Toxicity to various agents [Recovered/Resolved]
  - Serotonin syndrome [Recovered/Resolved]
  - Suicide attempt [Unknown]
  - Intentional product misuse [Unknown]
